FAERS Safety Report 8582669-3 (Version None)
Quarter: 2012Q3

REPORT INFORMATION
  Report Type: 
  Country: None (occurrence: None)
  Receive Date: 20120809
  Receipt Date: 20120806
  Transmission Date: 20120928
  Serious: No
  Sender: FDA-Public Use
  Company Number: US-PFIZER INC-2012068365

PATIENT
  Age: 76 Year
  Sex: Female
  Weight: 58.05 kg

DRUGS (2)
  1. GENOTROPIN [Suspect]
     Indication: HYPOPITUITARISM
     Dosage: 0.2 MG, DAILY
     Route: 058
     Dates: start: 20120101, end: 20120201
  2. NORVASC [Concomitant]
     Dosage: 5 MG, UNK

REACTIONS (4)
  - ASTHENIA [None]
  - WEIGHT INCREASED [None]
  - DRUG HYPERSENSITIVITY [None]
  - BACK PAIN [None]
